FAERS Safety Report 20208588 (Version 2)
Quarter: 2022Q1

REPORT INFORMATION
  Report Type: Spontaneous
  Country: US (occurrence: US)
  Receive Date: 20211220
  Receipt Date: 20220113
  Transmission Date: 20220423
  Serious: Yes (Hospitalization)
  Sender: FDA-Public Use
  Company Number: US-TEVA-2021-US-1989742

PATIENT
  Age: 74 Year
  Sex: Female

DRUGS (5)
  1. METRONIDAZOLE [Suspect]
     Active Substance: METRONIDAZOLE
     Indication: Giardiasis
     Route: 065
  2. OCTREOTIDE [Suspect]
     Active Substance: OCTREOTIDE
     Indication: Drug-induced liver injury
     Route: 065
  3. PAROMOMYCIN [Suspect]
     Active Substance: PAROMOMYCIN
     Indication: Giardiasis
     Route: 065
  4. RIFAXIMIN [Suspect]
     Active Substance: RIFAXIMIN
     Indication: Drug-induced liver injury
     Route: 065
  5. CHOLESTYRAMINE [Suspect]
     Active Substance: CHOLESTYRAMINE
     Indication: Drug-induced liver injury
     Route: 065

REACTIONS (2)
  - Drug-induced liver injury [Recovering/Resolving]
  - Drug ineffective [Unknown]
